FAERS Safety Report 6517795-3 (Version None)
Quarter: 2009Q4

REPORT INFORMATION
  Report Type: 
  Country: None (occurrence: None)
  Receive Date: 20091224
  Receipt Date: 20091222
  Transmission Date: 20100525
  Serious: Yes (Hospitalization)
  Sender: FDA-Public Use
  Company Number: TR-ELI_LILLY_AND_COMPANY-TR200912004934

PATIENT
  Age: 49 Year
  Sex: Female

DRUGS (5)
  1. HUMALOG MIX 50/50 [Suspect]
     Indication: DIABETES MELLITUS
     Dosage: 18 U, 3/D
     Route: 058
     Dates: start: 20081222
  2. GLUKOFEN [Concomitant]
     Indication: DIABETES MELLITUS
     Dosage: UNK, 2/D
  3. LIPANTHYL [Concomitant]
     Indication: BLOOD CHOLESTEROL
     Dosage: UNK, DAILY (1/D)
  4. CANDESARTAN CILEXETIL [Concomitant]
     Indication: HYPERTENSION
     Dosage: UNK, AS NEEDED
  5. VASTAREL [Concomitant]
     Indication: CARDIAC DISORDER
     Dosage: UNK, 2/D

REACTIONS (1)
  - BLOOD GLUCOSE INCREASED [None]
